FAERS Safety Report 10659326 (Version 1)
Quarter: 2014Q4

REPORT INFORMATION
  Report Type: Spontaneous
  Country: US (occurrence: None)
  Receive Date: 20141205
  Receipt Date: 20141205
  Transmission Date: 20150529
  Serious: Yes (Hospitalization)
  Sender: FDA-Public Use
  Company Number: USA-2014111266

PATIENT
  Age: 76 Year
  Sex: Male

DRUGS (9)
  1. CRESTOR [Concomitant]
     Active Substance: ROSUVASTATIN CALCIUM
  2. VELCADE [Concomitant]
     Active Substance: BORTEZOMIB
  3. DEXAMETHASONE (DEXAMETHASONE) [Concomitant]
     Active Substance: DEXAMETHASONE
  4. PLAVIX (CLOPIDOGREL BISULFATE) [Concomitant]
  5. ASPIRIN (ACETYLSALICYLIC ACID) [Concomitant]
     Active Substance: ASPIRIN
  6. FOLIC ACID (FOLIC ACID) [Concomitant]
     Active Substance: FOLIC ACID
  7. TIMOLOL MALEATE (TIMOLOL MALEATE) [Concomitant]
     Active Substance: TIMOLOL
  8. MULTIVITAMINS (ERGOCALCIFEROL, ASCORBIC ACID, FOLIC ACID, THIAMINE HYDROCHLORIDE, RETINOL, RIBOFLAVIN, NICOTINAMIDE, PANTHENOL [Concomitant]
  9. POMALYST [Suspect]
     Active Substance: POMALIDOMIDE
     Indication: PLASMA CELL MYELOMA
     Dosage: 21 INB 21 D
     Route: 048
     Dates: start: 20140911

REACTIONS (1)
  - Plasma cell myeloma recurrent [None]

NARRATIVE: CASE EVENT DATE: 201409
